FAERS Safety Report 14413691 (Version 6)
Quarter: 2018Q2

REPORT INFORMATION
  Report Type: Spontaneous
  Country: US (occurrence: US)
  Receive Date: 20180119
  Receipt Date: 20180503
  Transmission Date: 20180711
  Serious: Yes (Hospitalization)
  Sender: FDA-Public Use
  Company Number: US-ACTELION-A-NJ2018-165881

PATIENT
  Age: 75 Year
  Sex: Female

DRUGS (4)
  1. VELETRI [Suspect]
     Active Substance: EPOPROSTENOL
     Indication: PULMONARY ARTERIAL HYPERTENSION
     Dosage: 16 NG/KG, PER MIN
     Route: 042
     Dates: start: 20151124
  2. REMODULIN [Suspect]
     Active Substance: TREPROSTINIL
     Indication: PRODUCT USED FOR UNKNOWN INDICATION
     Dosage: UNK
     Route: 042
     Dates: start: 201804
  3. OPSUMIT [Suspect]
     Active Substance: MACITENTAN
     Indication: PULMONARY ARTERIAL HYPERTENSION
     Dosage: 10 MG, QD
     Route: 048
     Dates: start: 20171219
  4. VELETRI [Suspect]
     Active Substance: EPOPROSTENOL
     Dosage: 14 NG/KG, PER MIN
     Route: 042
     Dates: end: 201804

REACTIONS (21)
  - Feeling hot [Not Recovered/Not Resolved]
  - Nausea [Recovered/Resolved]
  - Insomnia [Unknown]
  - Flushing [Unknown]
  - Cough [Unknown]
  - Aphonia [Not Recovered/Not Resolved]
  - Influenza like illness [Unknown]
  - Diarrhoea [Unknown]
  - Drug dose omission [Unknown]
  - Malaise [Unknown]
  - Catheter management [Recovering/Resolving]
  - Device related infection [Unknown]
  - Headache [Recovered/Resolved]
  - Wheezing [Not Recovered/Not Resolved]
  - Influenza [Unknown]
  - Central venous catheterisation [Unknown]
  - Condition aggravated [Not Recovered/Not Resolved]
  - Bronchitis [Not Recovered/Not Resolved]
  - Musculoskeletal chest pain [Unknown]
  - Psychomotor hyperactivity [Unknown]
  - Oropharyngeal pain [Unknown]

NARRATIVE: CASE EVENT DATE: 201801
